FAERS Safety Report 9452725 (Version 2)
Quarter: 2013Q3

REPORT INFORMATION
  Report Type: Spontaneous
  Country: JP (occurrence: JP)
  Receive Date: 20130812
  Receipt Date: 20130923
  Transmission Date: 20140515
  Serious: Yes (Death, Life-Threatening, Hospitalization, Other)
  Sender: FDA-Public Use
  Company Number: PHHY2013JP085377

PATIENT
  Age: 61 Year
  Sex: Male

DRUGS (5)
  1. NEORAL [Suspect]
     Indication: BONE MARROW TRANSPLANT
     Dosage: 40 MG, PER DAY
  2. PREDNISOLONE [Suspect]
     Dosage: 10 MG, DAILY
  3. METHOTREXATE [Suspect]
     Indication: PROPHYLAXIS AGAINST GRAFT VERSUS HOST DISEASE
  4. FILGRASTIM [Concomitant]
     Dosage: 300 UG/M2, QD
     Route: 042
  5. NATEGLINIDE [Concomitant]

REACTIONS (10)
  - Herpes simplex hepatitis [Fatal]
  - Hepatitis fulminant [Fatal]
  - Hepatic necrosis [Fatal]
  - Abdominal pain upper [Fatal]
  - Fulminant type 1 diabetes mellitus [Not Recovered/Not Resolved]
  - Hyperglycaemia [Recovered/Resolved]
  - Decreased appetite [Unknown]
  - Acute graft versus host disease [Recovered/Resolved]
  - Immunosuppression [Unknown]
  - Cytomegalovirus infection [Unknown]
